FAERS Safety Report 7968360-2 (Version None)
Quarter: 2011Q4

REPORT INFORMATION
  Report Type: 
  Country: None (occurrence: None)
  Receive Date: 20111209
  Receipt Date: 20111206
  Transmission Date: 20120403
  Serious: No
  Sender: FDA-Public Use
  Company Number: US-B.I. PHARMACEUTICALS,INC./RIDGEFIELD-2011-BP-27569BP

PATIENT
  Sex: Female

DRUGS (7)
  1. NORVASC [Concomitant]
     Dosage: 5 MG
     Route: 048
     Dates: start: 20060101
  2. NEXIUM [Concomitant]
     Dosage: 40 MG
     Route: 048
     Dates: start: 20060101
  3. AMBIEN [Concomitant]
     Indication: INSOMNIA
     Dosage: 12.5 MG
     Route: 048
     Dates: start: 20060101
  4. MICARDIS HCT [Concomitant]
     Indication: CHEST DISCOMFORT
     Dosage: 40 MG
     Route: 048
     Dates: start: 20060101
  5. VITAMIN TAB [Concomitant]
     Indication: SUPPLEMENTATION THERAPY
     Route: 048
     Dates: start: 19990101
  6. PRADAXA [Suspect]
     Indication: ATRIAL FIBRILLATION
     Dosage: 300 MG
     Route: 048
     Dates: start: 20111128
  7. CRESTOR [Concomitant]
     Indication: BLOOD CHOLESTEROL ABNORMAL
     Dosage: 10 MG
     Route: 048
     Dates: start: 20060101

REACTIONS (3)
  - ROAD TRAFFIC ACCIDENT [None]
  - VISION BLURRED [None]
  - HEADACHE [None]
